FAERS Safety Report 8813728 (Version 2)
Quarter: 2015Q1

REPORT INFORMATION
  Report Type: Spontaneous
  Country: ES (occurrence: ES)
  Receive Date: 20120928
  Receipt Date: 20150119
  Transmission Date: 20150721
  Serious: Yes (Hospitalization, Other)
  Sender: FDA-Public Use
  Company Number: ES-RANBAXY-2012R1-60453

PATIENT
  Age: 26 Year
  Sex: Male

DRUGS (6)
  1. QUETIAPINE [Suspect]
     Active Substance: QUETIAPINE
     Indication: PRODUCT USED FOR UNKNOWN INDICATION
     Dosage: UNK
     Route: 048
  2. RIVOTRIL [Interacting]
     Active Substance: CLONAZEPAM
     Indication: AGGRESSION
     Dosage: 6.5 MG, DAILY DIVIDED INTO 4 DOSES
     Route: 048
  3. RISPERIDONE. [Interacting]
     Active Substance: RISPERIDONE
     Indication: AGGRESSION
     Dosage: 1 MG, BID
     Route: 065
  4. TOPIRAMATE. [Interacting]
     Active Substance: TOPIRAMATE
     Indication: AGGRESSION
     Dosage: 50 MG, TID
     Route: 065
  5. FLURAZEPAM [Interacting]
     Active Substance: FLURAZEPAM\FLURAZEPAM HYDROCHLORIDE
     Indication: AGGRESSION
     Dosage: 30 MG, DAILY
     Route: 065
  6. BIPERIDEN RETARD [Interacting]
     Active Substance: BIPERIDEN
     Indication: AGGRESSION
     Dosage: 4 MG, DAILY
     Route: 065

REACTIONS (7)
  - Rhabdomyolysis [Recovering/Resolving]
  - Human bite [None]
  - Abdominal pain [None]
  - Blood potassium decreased [None]
  - Irritability [None]
  - Intentional self-injury [None]
  - Drug interaction [Unknown]
